FAERS Safety Report 21276729 (Version 1)
Quarter: 2022Q3

REPORT INFORMATION
  Report Type: Spontaneous
  Country: US (occurrence: US)
  Receive Date: 20220831
  Receipt Date: 20220831
  Transmission Date: 20221026
  Serious: No
  Sender: FDA-Public Use
  Company Number: US-ABBVIE-22K-163-4372316-00

PATIENT
  Sex: Female

DRUGS (1)
  1. HUMIRA [Suspect]
     Active Substance: ADALIMUMAB
     Indication: Product used for unknown indication
     Route: 058

REACTIONS (6)
  - Wrong technique in product usage process [Not Recovered/Not Resolved]
  - Joint range of motion decreased [Unknown]
  - Gait disturbance [Unknown]
  - Symptom recurrence [Unknown]
  - Back pain [Unknown]
  - Pain [Unknown]
